FAERS Safety Report 5635449-2 (Version None)
Quarter: 2008Q1

REPORT INFORMATION
  Report Type: 
  Country: None (occurrence: None)
  Receive Date: 20080222
  Receipt Date: 20080212
  Transmission Date: 20080703
  Serious: Yes (Other)
  Sender: FDA-Public Use
  Company Number: NZ-PFIZER INC-2008013871

PATIENT
  Sex: Male

DRUGS (1)
  1. ZELDOX (CAPSULES) [Suspect]

REACTIONS (6)
  - ACTIVITIES OF DAILY LIVING IMPAIRED [None]
  - AGITATION [None]
  - CRYING [None]
  - EMOTIONAL DISTRESS [None]
  - PARANOIA [None]
  - THINKING ABNORMAL [None]
